FAERS Safety Report 25206291 (Version 1)
Quarter: 2025Q2

REPORT INFORMATION
  Report Type: Spontaneous
  Country: US (occurrence: US)
  Receive Date: 20250417
  Receipt Date: 20250417
  Transmission Date: 20250717
  Serious: No
  Sender: BAUSCH AND LOMB
  Company Number: US-BAUSCH-BL-2025-004783

PATIENT
  Age: 16 Year
  Sex: Female

DRUGS (1)
  1. CABTREO [Suspect]
     Active Substance: ADAPALENE\BENZOYL PEROXIDE\CLINDAMYCIN PHOSPHATE
     Indication: Acne
     Route: 065
     Dates: start: 20250319, end: 20250319

REACTIONS (4)
  - Swelling face [Unknown]
  - Application site pruritus [Unknown]
  - Application site vesicles [Unknown]
  - Application site pain [Unknown]

NARRATIVE: CASE EVENT DATE: 20250319
